FAERS Safety Report 14244221 (Version 1)
Quarter: 2017Q4

REPORT INFORMATION
  Report Type: Spontaneous
  Country: US (occurrence: US)
  Receive Date: 20171201
  Receipt Date: 20171201
  Transmission Date: 20180321
  Serious: No
  Sender: FDA-Public Use
  Company Number: US-GE HEALTHCARE LIFE SCIENCES-2017CSU003696

PATIENT
  Age: 58 Year
  Sex: Male

DRUGS (1)
  1. OPTISON [Suspect]
     Active Substance: ALBUMIN HUMAN
     Indication: CHEST PAIN
     Dosage: 1.5 ML (3ML OF OPTISON DILUTED WITH 7 ML OF NORMAL SALINE), SINGLE
     Route: 042
     Dates: start: 20171109, end: 20171109

REACTIONS (1)
  - Headache [Unknown]

NARRATIVE: CASE EVENT DATE: 20171109
